FAERS Safety Report 21630457 (Version 1)
Quarter: 2022Q4

REPORT INFORMATION
  Report Type: Spontaneous
  Country: US (occurrence: US)
  Receive Date: 20221122
  Receipt Date: 20221122
  Transmission Date: 20230112
  Serious: No
  Sender: FDA-Public Use
  Company Number: US-AMGEN-USASP2022197902

PATIENT
  Sex: Female

DRUGS (9)
  1. PROLIA [Suspect]
     Active Substance: DENOSUMAB
     Indication: Osteoporosis
     Dosage: UNK
     Route: 065
  2. ZYRTEC [Concomitant]
     Active Substance: CETIRIZINE HYDROCHLORIDE
     Indication: Rash
     Dosage: 10 MILLIGRAM, 4 TABLETS DAILY
     Route: 065
  3. ZYRTEC [Concomitant]
     Active Substance: CETIRIZINE HYDROCHLORIDE
     Indication: Urticaria
  4. PAXIL [Concomitant]
     Active Substance: PAROXETINE HYDROCHLORIDE
     Indication: Depression
     Dosage: 10 MILLIGRAM, QD
     Route: 065
  5. PEPCID [Concomitant]
     Active Substance: FAMOTIDINE
     Dosage: 10 MILLIGRAM, QD
     Route: 065
  6. CLONAZEPAM [Concomitant]
     Active Substance: CLONAZEPAM
     Indication: Anxiety
     Dosage: AS NEEDED
     Route: 065
  7. FLUOCINONIDE [Concomitant]
     Active Substance: FLUOCINONIDE
     Indication: Skin irritation
     Dosage: UNK
     Route: 065
  8. FLUOCINONIDE [Concomitant]
     Active Substance: FLUOCINONIDE
     Indication: Pruritus
  9. PRASTERONE [Concomitant]
     Active Substance: PRASTERONE
     Dosage: NIGHTLY
     Route: 065

REACTIONS (8)
  - Skin haemorrhage [Not Recovered/Not Resolved]
  - Stress [Recovering/Resolving]
  - Skin irritation [Not Recovered/Not Resolved]
  - Pruritus [Not Recovered/Not Resolved]
  - Swelling face [Not Recovered/Not Resolved]
  - Rash [Not Recovered/Not Resolved]
  - Alopecia [Not Recovered/Not Resolved]
  - Urticaria [Not Recovered/Not Resolved]

NARRATIVE: CASE EVENT DATE: 20220101
